FAERS Safety Report 5530619-6 (Version None)
Quarter: 2007Q4

REPORT INFORMATION
  Report Type: 
  Country: None (occurrence: None)
  Receive Date: 20071130
  Receipt Date: 20071127
  Transmission Date: 20080405
  Serious: Yes (Other)
  Sender: FDA-Public Use
  Company Number: A0696040A

PATIENT
  Age: 82 Year
  Sex: Female

DRUGS (1)
  1. BACTROBAN [Suspect]
     Indication: SKIN INFECTION
     Route: 061
     Dates: start: 20071120, end: 20071121

REACTIONS (4)
  - APPLICATION SITE PRURITUS [None]
  - INCORRECT ROUTE OF DRUG ADMINISTRATION [None]
  - PRURITUS [None]
  - VISUAL ACUITY REDUCED [None]
